FAERS Safety Report 8010513-1 (Version None)
Quarter: 2011Q4

REPORT INFORMATION
  Report Type: 
  Country: None (occurrence: None)
  Receive Date: 20111222
  Receipt Date: 20111212
  Transmission Date: 20120403
  Serious: Yes (Hospitalization)
  Sender: FDA-Public Use
  Company Number: 1136909

PATIENT
  Age: 40 Year
  Sex: Male
  Weight: 107 kg

DRUGS (17)
  1. LOSARTAN POTASSIUM [Suspect]
     Indication: HYPERTENSION
  2. LIDOCAINE HCL [Concomitant]
  3. CARISOPRODOL [Concomitant]
  4. PROPOFOL [Concomitant]
  5. SUFENTANIL CITRATE [Concomitant]
  6. DEXMEDETOMIDINE HYDROCHLORIDE [Suspect]
     Indication: MAINTENANCE OF ANAESTHESIA
     Dosage: 0.5 MCG/KG/HR, INTRAVENOUS DRIP
     Route: 041
  7. ISOFLURANE [Concomitant]
  8. (I.V. SOLUTIONS) [Concomitant]
  9. ACETAMINOPHEN AND HYDROCODONE BITARTRATE [Concomitant]
  10. MELOXICAM [Suspect]
     Indication: PRODUCT USED FOR UNKNOWN INDICATION
  11. TAMSULOSIN HCL [Suspect]
     Indication: PRODUCT USED FOR UNKNOWN INDICATION
  12. GABAPENTIN [Concomitant]
  13. VECURONIUM BROMIDE [Concomitant]
  14. (BLOOD AND RELATED PRODUCTS) [Concomitant]
  15. MIDAZOLAM [Concomitant]
  16. ALBUMIN (HUMAN) [Concomitant]
  17. KETAMINE HCL [Concomitant]

REACTIONS (3)
  - POLYURIA [None]
  - HYPOTENSION [None]
  - TACHYCARDIA [None]
